FAERS Safety Report 6835574-4 (Version None)
Quarter: 2010Q3

REPORT INFORMATION
  Report Type: 
  Country: None (occurrence: None)
  Receive Date: 20100713
  Receipt Date: 20100701
  Transmission Date: 20110219
  Serious: Yes (Hospitalization, Other)
  Sender: FDA-Public Use
  Company Number: US-ELI_LILLY_AND_COMPANY-US201005001406

PATIENT
  Sex: Female

DRUGS (3)
  1. FORTEO [Suspect]
     Indication: OSTEOPOROSIS
     Dosage: 20 UG, DAILY (1/D)
     Dates: start: 20090101, end: 20100201
  2. FORTEO [Suspect]
     Dosage: 20 UG, DAILY (1/D)
     Dates: start: 20100303
  3. ZOLOFT [Concomitant]
     Dosage: 200 MG, 2/D

REACTIONS (14)
  - ALTERED STATE OF CONSCIOUSNESS [None]
  - ANKLE FRACTURE [None]
  - BLOOD PRESSURE DECREASED [None]
  - CONTUSION [None]
  - HAEMORRHAGE INTRACRANIAL [None]
  - HIP FRACTURE [None]
  - JAW FRACTURE [None]
  - JOINT SWELLING [None]
  - LIMB CRUSHING INJURY [None]
  - PELVIC FRACTURE [None]
  - PLEURAL EFFUSION [None]
  - POSTURE ABNORMAL [None]
  - RIB FRACTURE [None]
  - ROAD TRAFFIC ACCIDENT [None]
